FAERS Safety Report 11437983 (Version 9)
Quarter: 2016Q1

REPORT INFORMATION
  Report Type: Spontaneous
  Country: US (occurrence: US)
  Receive Date: 20150831
  Receipt Date: 20160226
  Transmission Date: 20160525
  Serious: Yes (Death, Life-Threatening, Hospitalization)
  Sender: FDA-Public Use
  Company Number: US-ACTELION-A-US2015-120702

PATIENT
  Age: 52 Year
  Sex: Female
  Weight: 65.99 kg

DRUGS (6)
  1. DILTIAZEM [Concomitant]
     Active Substance: DILTIAZEM
  2. TRACLEER [Suspect]
     Active Substance: BOSENTAN
     Indication: PULMONARY ARTERIAL HYPERTENSION
     Dosage: 125 MG, UNK
     Route: 048
     Dates: end: 20160206
  3. REMODULIN [Concomitant]
     Active Substance: TREPROSTINIL
  4. SILDENAFIL. [Concomitant]
     Active Substance: SILDENAFIL
  5. COUMADIN [Concomitant]
     Active Substance: WARFARIN SODIUM
  6. LASIX [Concomitant]
     Active Substance: FUROSEMIDE

REACTIONS (9)
  - Presyncope [Unknown]
  - Death [Fatal]
  - Cardiac failure congestive [Unknown]
  - Condition aggravated [Unknown]
  - Dyspnoea [Unknown]
  - Weight decreased [Unknown]
  - Cardiac failure [Unknown]
  - Fluid overload [Unknown]
  - Pulmonary arterial hypertension [Unknown]

NARRATIVE: CASE EVENT DATE: 20160206
